FAERS Safety Report 4285263-8 (Version None)
Quarter: 2004Q1

REPORT INFORMATION
  Report Type: 
  Country: None (occurrence: None)
  Receive Date: 20040203
  Receipt Date: 20040203
  Transmission Date: 20041129
  Serious: Yes (Life-Threatening)
  Sender: FDA-Public Use
  Company Number: None

PATIENT
  Sex: Female

DRUGS (11)
  1. AMIODARONE HCL [Suspect]
     Indication: CARDIAC FAILURE CONGESTIVE
     Dosage: 400 MG TID
  2. METOPROLOL [Suspect]
     Indication: HYPERTENSION
     Dosage: 37.5 MG QID
  3. ENALAPRIL [Concomitant]
  4. LEVOTHYROXINE SODIUM [Concomitant]
  5. GLYBURIDE [Concomitant]
  6. FUROSEMIDE [Concomitant]
  7. M.V.I. [Concomitant]
  8. ASPIRIN [Concomitant]
  9. SENNA/DOCUSATE [Concomitant]
  10. APAP TAB [Concomitant]
  11. LACTULOSE [Concomitant]

REACTIONS (11)
  - BLOOD PRESSURE DECREASED [None]
  - DYSPNOEA [None]
  - EJECTION FRACTION DECREASED [None]
  - FEELING COLD [None]
  - HEART RATE INCREASED [None]
  - NAUSEA [None]
  - NODAL RHYTHM [None]
  - OEDEMA [None]
  - URINE OUTPUT DECREASED [None]
  - VOMITING [None]
  - WHEEZING [None]
